FAERS Safety Report 10193263 (Version 1)
Quarter: 2014Q2

REPORT INFORMATION
  Report Type: Spontaneous
  Country: US (occurrence: US)
  Receive Date: 20140524
  Receipt Date: 20140524
  Transmission Date: 20141212
  Serious: No
  Sender: FDA-Public Use
  Company Number: US-SA-2013SA116885

PATIENT
  Age: 66 Year
  Sex: Female

DRUGS (3)
  1. LANTUS [Suspect]
     Route: 051
  2. METFORMIN [Concomitant]
     Route: 065
  3. RHI-PHA [Concomitant]
     Route: 065

REACTIONS (2)
  - Nausea [Unknown]
  - Vomiting [Unknown]
